FAERS Safety Report 24770782 (Version 1)
Quarter: 2024Q4

REPORT INFORMATION
  Report Type: Spontaneous
  Country: US (occurrence: None)
  Receive Date: 20241223
  Receipt Date: 20241223
  Transmission Date: 20250115
  Serious: No
  Sender: Public
  Company Number: None

PATIENT
  Age: 70 Year
  Sex: Female
  Weight: 90 kg

DRUGS (4)
  1. GABAPENTIN [Suspect]
     Active Substance: GABAPENTIN
     Indication: Breast reconstruction
     Dates: start: 20241024, end: 20241115
  2. CLARTIN [Concomitant]
  3. OZEMPIC [Concomitant]
     Active Substance: SEMAGLUTIDE
  4. FLONASE [Concomitant]
     Active Substance: FLUTICASONE PROPIONATE

REACTIONS (11)
  - Therapy interrupted [None]
  - Depressed level of consciousness [None]
  - Asthenia [None]
  - Fatigue [None]
  - Tremor [None]
  - Confusional state [None]
  - Amnesia [None]
  - Asthenia [None]
  - Balance disorder [None]
  - Tremor [None]
  - Drug rechallenge positive [None]

NARRATIVE: CASE EVENT DATE: 20241115
